FAERS Safety Report 10378052 (Version 1)
Quarter: 2014Q1

REPORT INFORMATION
  Report Type: Spontaneous
  Country: US (occurrence: None)
  Receive Date: 20140306
  Receipt Date: 20140306
  Transmission Date: 20141002
  Serious: Yes (Hospitalization)
  Sender: FDA-Public Use
  Company Number: 163-21880-13014692

PATIENT
  Age: 82 Year
  Sex: Female

DRUGS (1)
  1. REVLIMID (LENALIDOMIDE) (10 MILLIGRAMS, CAPSULES) [Suspect]
     Indication: ACUTE LYMPHOCYTIC LEUKAEMIA
     Dosage: 10MG, 3 IN 1 WK, PO
     Route: 048
     Dates: start: 20100216, end: 20130109

REACTIONS (2)
  - Pneumonia [None]
  - Myocardial infarction [None]
